FAERS Safety Report 21103793 (Version 1)
Quarter: 2022Q3

REPORT INFORMATION
  Report Type: Spontaneous
  Country: US (occurrence: US)
  Receive Date: 20220720
  Receipt Date: 20220720
  Transmission Date: 20221027
  Serious: No
  Sender: FDA-Public Use
  Company Number: US-HBP-2022US027020

PATIENT
  Sex: Male

DRUGS (1)
  1. VALCHLOR [Suspect]
     Active Substance: MECHLORETHAMINE
     Indication: Product used for unknown indication
     Dosage: UNK, QD
     Route: 061

REACTIONS (3)
  - Nausea [Unknown]
  - Application site pruritus [Unknown]
  - Application site irritation [Unknown]
